FAERS Safety Report 5297363-4 (Version None)
Quarter: 2007Q2

REPORT INFORMATION
  Report Type: 
  Country: None (occurrence: None)
  Receive Date: 20070416
  Receipt Date: 20070403
  Transmission Date: 20071010
  Serious: Yes (Hospitalization, Other)
  Sender: FDA-Public Use
  Company Number: PHBS2007DK05612

PATIENT
  Age: 23 Year
  Sex: Male

DRUGS (12)
  1. CLOZAPINE [Suspect]
     Indication: SCHIZOPHRENIA
     Dosage: 250 MG/D
     Route: 048
     Dates: end: 20070328
  2. ABILIFY [Concomitant]
     Dosage: 10 MG, QD
     Route: 048
  3. RITALIN [Concomitant]
     Dosage: 20 MG, QD
  4. TRUXAL [Concomitant]
     Dosage: UNK, PRN
  5. METHYLPHENIDATE HCL [Concomitant]
  6. STRATTERA [Suspect]
     Dosage: 40 MG, QD
     Dates: start: 20070309, end: 20070325
  7. STRATTERA [Suspect]
     Dosage: 40 MG, BID
     Dates: start: 20070326, end: 20070328
  8. EGAZIL DURETTER [Concomitant]
     Dosage: 0.4 MG, QD
  9. NEXIUM [Concomitant]
     Dosage: 40 MG, QD
  10. RITALIN - SLOW RELEASE [Concomitant]
     Dosage: 30 MG, BID
  11. NOZINAN [Concomitant]
     Dosage: UNK, PRN
  12. ZYPREXA [Concomitant]
     Dosage: UNK, PRN

REACTIONS (5)
  - DRUG INTERACTION [None]
  - LEUKOPENIA [None]
  - LYMPHOCYTE COUNT DECREASED [None]
  - NEUTROPENIA [None]
  - PLATELET COUNT INCREASED [None]
